FAERS Safety Report 8921316 (Version 1)
Quarter: 2012Q4

REPORT INFORMATION
  Report Type: 
  Country: US (occurrence: US)
  Receive Date: 20121122
  Receipt Date: 20121122
  Transmission Date: 20130627
  Serious: No
  Sender: FDA-Public Use
  Company Number: US-009507513-1211USA004502

PATIENT
  Age: 39 Year
  Sex: Female

DRUGS (1)
  1. AZASITE [Suspect]
     Dosage: UNK
     Route: 047
     Dates: start: 20121107, end: 20121108

REACTIONS (5)
  - Ocular hyperaemia [Not Recovered/Not Resolved]
  - Eye irritation [Not Recovered/Not Resolved]
  - Eye pain [Not Recovered/Not Resolved]
  - Eye pruritus [Not Recovered/Not Resolved]
  - Eye swelling [Not Recovered/Not Resolved]
